FAERS Safety Report 26188331 (Version 1)
Quarter: 2025Q4

REPORT INFORMATION
  Report Type: Spontaneous
  Country: TN (occurrence: TN)
  Receive Date: 20251222
  Receipt Date: 20251222
  Transmission Date: 20260118
  Serious: Yes (Other)
  Sender: AMGEN
  Company Number: TN-AMGEN-TUNSP2025251303

PATIENT

DRUGS (3)
  1. ETANERCEPT [Suspect]
     Active Substance: ETANERCEPT
     Indication: Autoimmune disorder
     Dosage: UNK
     Route: 065
  2. ETANERCEPT [Suspect]
     Active Substance: ETANERCEPT
     Indication: Inflammation
  3. ETANERCEPT [Suspect]
     Active Substance: ETANERCEPT
     Indication: Off label use

REACTIONS (18)
  - Anaphylactic shock [Unknown]
  - Urticaria [Unknown]
  - Face oedema [Unknown]
  - Angioedema [Unknown]
  - Dyspnoea [Unknown]
  - Loss of consciousness [Unknown]
  - Hypotension [Unknown]
  - Hot flush [Unknown]
  - Pyrexia [Unknown]
  - Chills [Unknown]
  - Abdominal pain [Unknown]
  - Nausea [Unknown]
  - Vomiting [Unknown]
  - Pruritus [Unknown]
  - Chest discomfort [Unknown]
  - Heart rate abnormal [Unknown]
  - Blood pressure abnormal [Unknown]
  - Off label use [Unknown]
